FAERS Safety Report 7328947-7 (Version None)
Quarter: 2011Q1

REPORT INFORMATION
  Report Type: 
  Country: None (occurrence: None)
  Receive Date: 20110218
  Receipt Date: 20110126
  Transmission Date: 20110831
  Serious: Yes (Disabling)
  Sender: FDA-Public Use
  Company Number: PL-021953

PATIENT
  Age: 60 Year
  Sex: Female

DRUGS (5)
  1. OMEPRAZOLE [Concomitant]
  2. (OTHER VITAMIN PRODUCTS, COMBINATIONS) [Concomitant]
  3. CALCIUM CARBONATE [Concomitant]
  4. (CHLORAMBUCIL) [Suspect]
     Indication: CHRONIC LYMPHOCYTIC LEUKAEMIA
     Dosage: 10 MGM2 AT DAYS 1-7 EVERY 21 DAYS ORAL
     Route: 048
     Dates: start: 20090817
  5. (ALFACALCIDOL) [Concomitant]

REACTIONS (1)
  - ANAEMIA HAEMOLYTIC AUTOIMMUNE [None]
